FAERS Safety Report 7260885-0 (Version None)
Quarter: 2011Q1

REPORT INFORMATION
  Report Type: 
  Country: None (occurrence: None)
  Receive Date: 20110130
  Receipt Date: 20101227
  Transmission Date: 20110831
  Serious: No
  Sender: FDA-Public Use
  Company Number: US-ABBOTT-10P-163-0693716-00

PATIENT
  Age: 42 Year
  Sex: Male

DRUGS (2)
  1. HUMIRA [Suspect]
     Indication: CROHN'S DISEASE
     Dosage: 160 MG LOADING DOSE
     Dates: start: 20101207, end: 20101221
  2. TYLENOL-500 [Concomitant]
     Indication: PAIN

REACTIONS (3)
  - CROHN'S DISEASE [None]
  - ARTHRALGIA [None]
  - ABDOMINAL PAIN [None]
